FAERS Safety Report 11650955 (Version 2)
Quarter: 2016Q1

REPORT INFORMATION
  Report Type: Report from Study
  Country: US (occurrence: US)
  Receive Date: 20151021
  Receipt Date: 20160330
  Transmission Date: 20160525
  Serious: Yes (Other)
  Sender: FDA-Public Use
  Company Number: US-ACTELION-A-NJ2015-125853

PATIENT
  Age: 71 Year
  Sex: Female

DRUGS (1)
  1. MACITENTAN [Suspect]
     Active Substance: MACITENTAN
     Indication: PULMONARY ARTERIAL HYPERTENSION
     Dosage: 10 MG, QD
     Route: 048
     Dates: start: 20150819

REACTIONS (6)
  - Disturbance in attention [Unknown]
  - Incorrect dose administered [Unknown]
  - Dialysis [Unknown]
  - Presyncope [Unknown]
  - Hypotension [Unknown]
  - Dizziness [Unknown]
